FAERS Safety Report 9406413 (Version 2)
Quarter: 2013Q3

REPORT INFORMATION
  Report Type: Spontaneous
  Country: FR (occurrence: FR)
  Receive Date: 20130718
  Receipt Date: 20130829
  Transmission Date: 20140515
  Serious: Yes (Other)
  Sender: FDA-Public Use
  Company Number: FR-ROCHE-1249952

PATIENT
  Sex: Male
  Weight: 64 kg

DRUGS (1)
  1. ZELBORAF [Suspect]
     Indication: METASTATIC MALIGNANT MELANOMA
     Route: 048
     Dates: start: 20130314, end: 20130506

REACTIONS (3)
  - Hepatocellular injury [Recovered/Resolved]
  - Malignant melanoma of sites other than skin [Unknown]
  - Eosinophilia [Recovered/Resolved]
